FAERS Safety Report 5469437-6 (Version None)
Quarter: 2007Q3

REPORT INFORMATION
  Report Type: 
  Country: None (occurrence: None)
  Receive Date: 20070925
  Receipt Date: 20070925
  Transmission Date: 20080115
  Serious: Yes (Hospitalization)
  Sender: FDA-Public Use
  Company Number: None

PATIENT
  Sex: Female
  Weight: 55.8 kg

DRUGS (2)
  1. CARBOPLATIN [Suspect]
     Dosage: 914.4 MG
  2. TAXOL [Suspect]
     Dosage: 266 MG

REACTIONS (1)
  - ANAEMIA [None]
